FAERS Safety Report 10083367 (Version 1)
Quarter: 2014Q2

REPORT INFORMATION
  Report Type: Other
  Country: GB (occurrence: GB)
  Receive Date: 20140417
  Receipt Date: 20140417
  Transmission Date: 20141212
  Serious: Yes (Life-Threatening, Hospitalization)
  Sender: FDA-Public Use
  Company Number: GB-LUPIN PHARMACEUTICALS INC.-E2B_00001925

PATIENT
  Age: 61 Year
  Sex: Male

DRUGS (4)
  1. SIMVASTATIN [Suspect]
     Indication: HYPERLIPIDAEMIA
     Route: 048
     Dates: start: 20111213, end: 20140305
  2. NATRASLEEP [Suspect]
     Indication: PRODUCT USED FOR UNKNOWN INDICATION
     Route: 048
     Dates: start: 20140227, end: 20140304
  3. ALLOPURINOL [Concomitant]
     Indication: GOUT
     Route: 048
     Dates: start: 20080125
  4. PERINDOPRIL ERBUMINE [Concomitant]
     Indication: HYPERTENSION
     Route: 048
     Dates: start: 20111213, end: 20140305

REACTIONS (17)
  - Urinary retention [Unknown]
  - Drug interaction [Unknown]
  - Jaundice cholestatic [Unknown]
  - Hepatic function abnormal [Recovering/Resolving]
  - Renal failure acute [Recovering/Resolving]
  - Muscular weakness [Unknown]
  - Lethargy [Unknown]
  - Malaise [Unknown]
  - Abdominal discomfort [Unknown]
  - Faeces pale [Unknown]
  - Malaise [Unknown]
  - Renal failure acute [Not Recovered/Not Resolved]
  - Hepatic failure [Unknown]
  - Hepatic steatosis [Unknown]
  - Hepatomegaly [Unknown]
  - Portal vein flow decreased [Unknown]
  - Hepatitis acute [Unknown]
